FAERS Safety Report 4654667-3 (Version None)
Quarter: 2005Q2

REPORT INFORMATION
  Report Type: 
  Country: None (occurrence: None)
  Receive Date: 20050503
  Receipt Date: 20050503
  Transmission Date: 20051028
  Serious: Yes (Other)
  Sender: FDA-Public Use
  Company Number: None

PATIENT
  Sex: Female
  Weight: 60.5 kg

DRUGS (4)
  1. ETOPOSIDE [Suspect]
     Dosage: 10 MG/KG/DAY CIV ON DAYS 1-4
     Route: 042
     Dates: start: 20040611
  2. CYTARABINE [Suspect]
     Dosage: 2000 MG/M2 IV OVER 2 HR EVERY 12 HRS ON DAYS 1-4
     Route: 042
  3. G-CSF 10 MCG/KG/DAY SC BEGINNING ON DAY 14 [Suspect]
     Dosage: 10 MCG/KG/DAY SC BEGINNING ON DAY 14
     Route: 058
  4. STI-571 400 MG PO BID [Suspect]
     Dosage: 400 MG PO BID
     Route: 048

REACTIONS (5)
  - ALPHA HAEMOLYTIC STREPTOCOCCAL INFECTION [None]
  - BLOOD CULTURE POSITIVE [None]
  - CAECITIS [None]
  - ESCHERICHIA INFECTION [None]
  - HYPOTENSION [None]
